FAERS Safety Report 8254635-9 (Version None)
Quarter: 2012Q1

REPORT INFORMATION
  Report Type: 
  Country: None (occurrence: None)
  Receive Date: 20120329
  Receipt Date: 20110425
  Transmission Date: 20120608
  Serious: No
  Sender: FDA-Public Use
  Company Number: 2011P1006162

PATIENT
  Age: 79 Year
  Sex: Female
  Weight: 62.1428 kg

DRUGS (4)
  1. NYSTATIN [Suspect]
     Indication: FUNGAL INFECTION
     Dosage: BID; TOP, TOP
     Dates: start: 20110412
  2. ATIVAN [Concomitant]
  3. HYDROCHLOROTHIAZIDE [Concomitant]
  4. VERELAN [Concomitant]

REACTIONS (3)
  - INAPPROPRIATE SCHEDULE OF DRUG ADMINISTRATION [None]
  - DRUG EFFECT DECREASED [None]
  - ERYTHEMA [None]
